FAERS Safety Report 22526820 (Version 1)
Quarter: 2023Q2

REPORT INFORMATION
  Report Type: Spontaneous
  Country: JP (occurrence: JP)
  Receive Date: 20230606
  Receipt Date: 20230606
  Transmission Date: 20230721
  Serious: Yes (Death, Hospitalization, Other)
  Sender: FDA-Public Use
  Company Number: JP-TAKEDA-2023TJP002936

PATIENT
  Age: 8 Decade
  Sex: Male

DRUGS (1)
  1. ADCETRIS [Suspect]
     Active Substance: BRENTUXIMAB VEDOTIN
     Indication: Adult T-cell lymphoma/leukaemia
     Dosage: UNK, Q3WEEKS
     Route: 041
     Dates: start: 20211215

REACTIONS (3)
  - Haemophagocytic lymphohistiocytosis [Fatal]
  - Febrile neutropenia [Fatal]
  - Hepatic function abnormal [Fatal]
